FAERS Safety Report 6251539-8 (Version None)
Quarter: 2009Q2

REPORT INFORMATION
  Report Type: 
  Country: None (occurrence: None)
  Receive Date: 20090626
  Receipt Date: 20090626
  Transmission Date: 20091009
  Serious: No
  Sender: FDA-Public Use
  Company Number: None

PATIENT
  Age: 34 Year
  Sex: Female
  Weight: 58.9676 kg

DRUGS (2)
  1. ZICAM COLD REMEDY NASAL GEL ZINCUM GLUCONICUM 2X ZICAM/MATRIXX [Suspect]
     Indication: NASOPHARYNGITIS
     Dosage: 1 SPRAY IN EACH NOSTRIL QD NASAL
     Route: 045
     Dates: start: 20081101, end: 20081102
  2. ZICAM COLD REMEDY NASAL GEL ZINCUM GLUCONICUM 2X ZICAM/MATRIXX [Suspect]
     Indication: NASOPHARYNGITIS
     Dosage: 1 SPRAY IN EACH NOSTRIL QD NASAL
     Route: 045
     Dates: start: 20081206, end: 20081208

REACTIONS (6)
  - AGEUSIA [None]
  - ANOSMIA [None]
  - DYSGEUSIA [None]
  - HYPOSMIA [None]
  - NASAL DISCOMFORT [None]
  - WEIGHT DECREASED [None]
